FAERS Safety Report 4861578-7 (Version None)
Quarter: 2005Q4

REPORT INFORMATION
  Report Type: 
  Country: None (occurrence: None)
  Receive Date: 20051220
  Receipt Date: 20051208
  Transmission Date: 20060501
  Serious: Yes (Other)
  Sender: FDA-Public Use
  Company Number: US-NOVOPROD-249180

PATIENT
  Age: 3 Day
  Sex: Male

DRUGS (6)
  1. NOVOSEVEN [Suspect]
     Indication: HAEMORRHAGE
     Dosage: 200 UG EVERY TWO HOURS FOR 3 DOSES TOTAL
     Route: 042
  2. NOVOSEVEN [Suspect]
     Route: 042
  3. FRESH FROZEN PLASMA [Concomitant]
     Indication: DISSEMINATED INTRAVASCULAR COAGULATION IN NEWBORN
     Dosage: UNKNOWN
  4. PLATELETS [Concomitant]
     Indication: DISSEMINATED INTRAVASCULAR COAGULATION IN NEWBORN
     Dosage: UNKNOWN
  5. ANTIBIOTICS [Concomitant]
     Indication: ILL-DEFINED DISORDER
     Dosage: UNKNOWN
  6. KRIOPRECIPITAT [Concomitant]
     Indication: DISSEMINATED INTRAVASCULAR COAGULATION IN NEWBORN

REACTIONS (1)
  - PORTAL VEIN THROMBOSIS [None]
